FAERS Safety Report 12625414 (Version 2)
Quarter: 2019Q4

REPORT INFORMATION
  Report Type: Spontaneous
  Country: US (occurrence: US)
  Receive Date: 20160805
  Receipt Date: 20191211
  Transmission Date: 20200122
  Serious: Yes (Other)
  Sender: FDA-Public Use
  Company Number: US-TEVA-682027ACC

PATIENT
  Age: 23 Year
  Sex: Female

DRUGS (1)
  1. PLAN B ONE-STEP [Suspect]
     Active Substance: LEVONORGESTREL
     Indication: POST COITAL CONTRACEPTION
     Dates: start: 20160628, end: 20160628

REACTIONS (6)
  - Vaginal haemorrhage [Recovered/Resolved]
  - Pregnancy after post coital contraception [Unknown]
  - Dyspnoea [Not Recovered/Not Resolved]
  - Maternal exposure before pregnancy [Unknown]
  - Dizziness [Recovered/Resolved]
  - Abdominal pain [Recovered/Resolved]

NARRATIVE: CASE EVENT DATE: 20160703
